FAERS Safety Report 9030880 (Version 1)
Quarter: 2013Q1

REPORT INFORMATION
  Report Type: Spontaneous
  Country: DE (occurrence: DE)
  Receive Date: 20130123
  Receipt Date: 20130123
  Transmission Date: 20140127
  Serious: Yes (Other)
  Sender: FDA-Public Use
  Company Number: DE-ROCHE-1181622

PATIENT
  Age: 77 Year
  Sex: Female

DRUGS (2)
  1. LUCENTIS [Suspect]
     Indication: AGE-RELATED MACULAR DEGENERATION
     Route: 050
     Dates: start: 20121010
  2. LUCENTIS [Suspect]
     Route: 050
     Dates: start: 20121107

REACTIONS (4)
  - Macular scar [Not Recovered/Not Resolved]
  - Conjunctival haemorrhage [Recovered/Resolved]
  - Visual impairment [Recovered/Resolved]
  - No therapeutic response [Unknown]
